FAERS Safety Report 10163439 (Version 2)
Quarter: 2014Q2

REPORT INFORMATION
  Report Type: Spontaneous
  Country: BR (occurrence: BR)
  Receive Date: 20140509
  Receipt Date: 20140519
  Transmission Date: 20141212
  Serious: Yes (Other)
  Sender: FDA-Public Use
  Company Number: BR-BAYER-2014-067129

PATIENT
  Age: 90 Year
  Sex: Female

DRUGS (2)
  1. XARELTO [Suspect]
     Dosage: 15 MG, QD
     Route: 048
  2. ASPIRINA PREVENT [Suspect]
     Dosage: 100 MG, QD
     Route: 048

REACTIONS (2)
  - Cerebrovascular accident [None]
  - Haematoma [None]
